FAERS Safety Report 6564675-3 (Version None)
Quarter: 2010Q1

REPORT INFORMATION
  Report Type: 
  Country: None (occurrence: None)
  Receive Date: 20100201
  Receipt Date: 20100122
  Transmission Date: 20100710
  Serious: Yes (Death)
  Sender: FDA-Public Use
  Company Number: IT-MPIJNJ-2010-00830

PATIENT

DRUGS (7)
  1. VELCADE [Suspect]
     Indication: MULTIPLE MYELOMA
     Dosage: 2 MG, UNK
     Route: 042
     Dates: start: 20091030, end: 20091221
  2. DELTACORTENE [Concomitant]
     Dosage: 25 MG, UNK
     Route: 048
     Dates: start: 20091030, end: 20091221
  3. TRALODIE [Concomitant]
     Dosage: 100 MG, UNK
     Route: 048
     Dates: start: 20091030, end: 20091221
  4. OMEPRAZEN                          /00661201/ [Concomitant]
     Dosage: 20 MG, UNK
     Route: 048
     Dates: start: 20091030, end: 20091221
  5. AVODART [Concomitant]
     Indication: BENIGN PROSTATIC HYPERPLASIA
     Dosage: 0.5 MG, UNK
     Route: 048
     Dates: start: 20091030, end: 20091221
  6. DEXAMETHASONE [Concomitant]
     Dosage: 20 MG, UNK
     Route: 042
     Dates: start: 20091030, end: 20091221
  7. ACICLOVIR [Concomitant]
     Dosage: 800 MG, UNK
     Route: 048
     Dates: start: 20091030, end: 20091221

REACTIONS (2)
  - CARDIO-RESPIRATORY ARREST [None]
  - PULMONARY EMBOLISM [None]
